FAERS Safety Report 5483883-6 (Version None)
Quarter: 2007Q4

REPORT INFORMATION
  Report Type: 
  Country: None (occurrence: None)
  Receive Date: 20071010
  Receipt Date: 20071010
  Transmission Date: 20080405
  Serious: Yes (Death)
  Sender: FDA-Public Use
  Company Number: None

PATIENT
  Age: 34 Year
  Sex: Female
  Weight: 68.0396 kg

DRUGS (1)
  1. METHADONE HCL [Suspect]
     Indication: BACK INJURY
     Dosage: 10 MG 2XQD PO
     Route: 048
     Dates: start: 20060508, end: 20060510

REACTIONS (1)
  - DEATH [None]
